FAERS Safety Report 17353920 (Version 1)
Quarter: 2020Q1

REPORT INFORMATION
  Report Type: Spontaneous
  Country: IT (occurrence: IT)
  Receive Date: 20200131
  Receipt Date: 20200131
  Transmission Date: 20200409
  Serious: Yes (Other)
  Sender: FDA-Public Use
  Company Number: IT-ABBVIE-20P-083-3257231-00

PATIENT
  Age: 29 Year
  Sex: Female

DRUGS (2)
  1. ENANTONE LP [Suspect]
     Active Substance: LEUPROLIDE ACETATE
     Indication: INFERTILITY FEMALE
     Dosage: 3.75 MILLIGRAM
     Route: 058
     Dates: start: 20190708, end: 20190805
  2. ENANTONE LP [Suspect]
     Active Substance: LEUPROLIDE ACETATE
     Indication: HORMONAL CONTRACEPTION
     Dosage: UNK
     Route: 050

REACTIONS (1)
  - Hypertransaminasaemia [Recovered/Resolved]

NARRATIVE: CASE EVENT DATE: 20190719
